FAERS Safety Report 8829287 (Version 1)
Quarter: 2012Q4

REPORT INFORMATION
  Report Type: Spontaneous
  Country: DK (occurrence: None)
  Receive Date: 20121004
  Receipt Date: 20121004
  Transmission Date: 20130627
  Serious: Yes (Other)
  Sender: FDA-Public Use
  Company Number: 2012MA011782

PATIENT
  Age: 60 Year
  Sex: Female

DRUGS (2)
  1. LOSARTAN POTASSIUM [Suspect]
     Route: 048
  2. BENDROFLUMETHIAZIDE [Concomitant]

REACTIONS (3)
  - Arthralgia [None]
  - Musculoskeletal stiffness [None]
  - Mobility decreased [None]
